FAERS Safety Report 5085725-X (Version None)
Quarter: 2006Q3

REPORT INFORMATION
  Report Type: 
  Country: None (occurrence: None)
  Receive Date: 20060822
  Receipt Date: 20060811
  Transmission Date: 20061208
  Serious: Yes (Other)
  Sender: FDA-Public Use
  Company Number: GB-JNJFOC-20060803420

PATIENT
  Age: 61 Year
  Sex: Female

DRUGS (4)
  1. RISPERIDONE [Suspect]
     Indication: PSYCHOTIC DISORDER
     Route: 048
     Dates: start: 20060608, end: 20060611
  2. MIRTAZAPINE [Concomitant]
     Indication: DEPRESSION
     Route: 048
  3. RABEPRAZOLE SODIUM [Concomitant]
     Route: 048
  4. SIMVASTATIN [Concomitant]
     Route: 048

REACTIONS (1)
  - PEMPHIGUS [None]
